FAERS Safety Report 5400195-7 (Version None)
Quarter: 2007Q3

REPORT INFORMATION
  Report Type: 
  Country: None (occurrence: None)
  Receive Date: 20070730
  Receipt Date: 20070718
  Transmission Date: 20080115
  Serious: Yes (Other)
  Sender: FDA-Public Use
  Company Number: DK-AVENTIS-200713548EU

PATIENT
  Age: 56 Year
  Sex: Male

DRUGS (27)
  1. ENOXAPARIN SODIUM [Suspect]
     Route: 058
     Dates: start: 20060922, end: 20060928
  2. PLACEBO [Suspect]
     Route: 048
     Dates: start: 20060922, end: 20061025
  3. HALDID [Concomitant]
     Dates: start: 20060922, end: 20060922
  4. RAPIFEN                            /00109201/ [Concomitant]
     Route: 048
     Dates: start: 20060922, end: 20060922
  5. ULTIVA [Concomitant]
     Dates: start: 20060922, end: 20060922
  6. PROPOFOL [Concomitant]
     Dates: start: 20060922, end: 20060922
  7. SUXAMETON [Concomitant]
     Dates: start: 20060922, end: 20060922
  8. TIOMEBUMALNATRIUM [Concomitant]
     Dates: start: 20060922, end: 20060922
  9. CYKLOKAPRON [Concomitant]
     Indication: FIBRINOLYSIS INCREASED
     Dates: start: 20060922, end: 20060922
  10. ZINACEF                            /00454601/ [Concomitant]
     Indication: INFECTION PROPHYLAXIS
     Dates: start: 20060922, end: 20060922
  11. OXYCONTIN [Concomitant]
     Dates: start: 20051201, end: 20060921
  12. OXYCONTIN [Concomitant]
     Dates: start: 20060922, end: 20060926
  13. OXYCONTIN [Concomitant]
     Dates: start: 20060927
  14. OXYCONTIN [Concomitant]
     Dates: start: 20051201, end: 20060921
  15. OXYCONTIN [Concomitant]
     Dates: start: 20060922, end: 20060926
  16. OXYCONTIN [Concomitant]
     Dates: start: 20060927
  17. PINEX [Concomitant]
     Dates: start: 20020101, end: 20060921
  18. PINEX [Concomitant]
     Dates: start: 20060927
  19. PINEX [Concomitant]
     Dates: start: 20020101, end: 20060921
  20. PINEX [Concomitant]
     Dates: start: 20060927
  21. MORPHINE [Concomitant]
     Dates: start: 20060922, end: 20060922
  22. KETOGAN                            /00129101/ [Concomitant]
     Dates: start: 20060922, end: 20060922
  23. SELEXID                            /00445302/ [Concomitant]
     Indication: URINARY TRACT INFECTION
     Dates: start: 20060921, end: 20060926
  24. MARZINE                            /00014902/ [Concomitant]
     Indication: PROPHYLAXIS
     Dates: start: 20060922, end: 20060926
  25. LANSOPRAZOLE [Concomitant]
     Indication: PROPHYLAXIS
     Dates: start: 20060922, end: 20060926
  26. PERILAX                            /00064401/ [Concomitant]
     Indication: PROPHYLAXIS
     Dates: start: 20060923, end: 20060923
  27. OXYNORM [Concomitant]
     Dates: start: 20060922, end: 20060925

REACTIONS (1)
  - BLOOD BILIRUBIN INCREASED [None]
